FAERS Safety Report 21994724 (Version 1)
Quarter: 2023Q1

REPORT INFORMATION
  Report Type: Spontaneous
  Country: US (occurrence: None)
  Receive Date: 20230214
  Receipt Date: 20230214
  Transmission Date: 20230417
  Serious: Yes (Life-Threatening, Hospitalization)
  Sender: FDA-Public Use
  Company Number: None

PATIENT
  Age: 71 Year
  Sex: Male

DRUGS (13)
  1. VONJO [Suspect]
     Active Substance: PACRITINIB
     Indication: Myelofibrosis
     Dosage: 100 MG TWICE A DAY ORAL?
     Route: 048
     Dates: start: 20221220, end: 20230118
  2. LOSARTAN [Concomitant]
     Active Substance: LOSARTAN
  3. CALCIUM ACETATE [Concomitant]
     Active Substance: CALCIUM ACETATE
  4. Doxepin 20 mg [Concomitant]
  5. CLOBETASOL [Concomitant]
     Active Substance: CLOBETASOL
  6. ALLOPURINOL [Concomitant]
     Active Substance: ALLOPURINOL
  7. Carvediol 25mg [Concomitant]
  8. CLOTRIMAZOLE [Concomitant]
     Active Substance: CLOTRIMAZOLE
  9. PREDNISONE [Concomitant]
     Active Substance: PREDNISONE
  10. Acyclovir 200mg [Concomitant]
  11. Hydrea 500mg [Concomitant]
  12. COLCHICINE [Concomitant]
     Active Substance: COLCHICINE
  13. Calcium 600mg Plus Vitamin D [Concomitant]

REACTIONS (1)
  - Angina pectoris [None]

NARRATIVE: CASE EVENT DATE: 20230204
